FAERS Safety Report 23911329 (Version 1)
Quarter: 2024Q2

REPORT INFORMATION
  Report Type: Spontaneous
  Country: FR (occurrence: FR)
  Receive Date: 20240528
  Receipt Date: 20240528
  Transmission Date: 20240715
  Serious: Yes (Life-Threatening, Hospitalization)
  Sender: FDA-Public Use
  Company Number: None

PATIENT
  Age: 55 Year
  Sex: Male
  Weight: 49 kg

DRUGS (9)
  1. LANSOPRAZOLE [Suspect]
     Active Substance: LANSOPRAZOLE
     Indication: Prophylaxis against gastrointestinal ulcer
     Dosage: 30 MG, DAILY
     Route: 048
     Dates: start: 202308
  2. PAMIDRONATE DISODIUM [Suspect]
     Active Substance: PAMIDRONATE DISODIUM
     Indication: Non-small cell lung cancer
     Dosage: 90 MG
     Route: 042
     Dates: start: 20230812
  3. ACETAMINOPHEN [Suspect]
     Active Substance: ACETAMINOPHEN
     Indication: Pain
     Dosage: 3 G, DAILY
     Route: 048
     Dates: start: 20230803
  4. NICOTINE [Suspect]
     Active Substance: NICOTINE
     Indication: Nicotine dependence
     Dosage: UNK UNK, DAILY
     Route: 062
     Dates: start: 20230828
  5. MOVICOL [Suspect]
     Active Substance: POLYETHYLENE GLYCOL 3350\POTASSIUM CHLORIDE\SODIUM BICARBONATE\SODIUM CHLORIDE
     Indication: Constipation
     Dosage: 2 DF, DAILY
     Route: 048
     Dates: start: 20230828
  6. LIBTAYO [Suspect]
     Active Substance: CEMIPLIMAB-RWLC
     Indication: Non-small cell lung cancer
     Dosage: 100 MG, DAILY
     Route: 042
     Dates: start: 20230823, end: 20230823
  7. OXYCODONE [Suspect]
     Active Substance: OXYCODONE\OXYCODONE HYDROCHLORIDE
     Indication: Cancer pain
     Dosage: 500 MG, DAILY
     Route: 048
     Dates: start: 202308
  8. ACUPAN [Suspect]
     Active Substance: NEFOPAM HYDROCHLORIDE
     Indication: Cancer pain
     Dosage: 60 MG, DAILY, IF NEEDED
     Route: 048
     Dates: start: 20230808
  9. PREGABALIN [Suspect]
     Active Substance: PREGABALIN
     Dosage: 225 MG, DAILY
     Route: 048
     Dates: start: 20230813

REACTIONS (1)
  - Ischaemic stroke [Recovered/Resolved]

NARRATIVE: CASE EVENT DATE: 20230913
